FAERS Safety Report 5054095-5 (Version None)
Quarter: 2006Q3

REPORT INFORMATION
  Report Type: 
  Country: None (occurrence: None)
  Receive Date: 20060713
  Receipt Date: 20060704
  Transmission Date: 20061208
  Serious: Yes (Hospitalization)
  Sender: FDA-Public Use
  Company Number: 226976

PATIENT
  Age: 12 Year
  Sex: Female

DRUGS (10)
  1. MABTHERA(RITUXIMAB) CONC FOR SOLUTION FOR INFUSION [Suspect]
     Indication: SYSTEMIC LUPUS ERYTHEMATOSUS
     Dosage: 525 MG, 1/WEEK, INTRAVENOUS
     Route: 042
     Dates: start: 20020419, end: 20060425
  2. CELLCEPT [Concomitant]
  3. THALIDOMIDE [Concomitant]
  4. NEORAL [Concomitant]
  5. COZAAR [Concomitant]
  6. PREDNISONE TAB [Concomitant]
  7. COUMADIN [Concomitant]
  8. SOLU-MEDROL [Concomitant]
  9. POLARAMINE [Concomitant]
  10. PERFALGAN (ACETAMINOPHEN) [Concomitant]

REACTIONS (20)
  - ANURIA [None]
  - BIOPSY KIDNEY ABNORMAL [None]
  - BLOOD AMYLASE INCREASED [None]
  - CANDIDIASIS [None]
  - CELLULITIS [None]
  - CEREBRAL ATROPHY [None]
  - COLITIS [None]
  - CONVULSION [None]
  - DIALYSIS [None]
  - EMBOLISM [None]
  - ENCEPHALITIS BRAIN STEM [None]
  - HYPERTENSION [None]
  - LIPASE INCREASED [None]
  - LISTERIA ENCEPHALITIS [None]
  - NEPHROPATHY TOXIC [None]
  - PANCREATIC DISORDER [None]
  - PSEUDOMONAS INFECTION [None]
  - RENAL FAILURE [None]
  - RENAL TUBULAR DISORDER [None]
  - SEPSIS [None]
